FAERS Safety Report 9161985 (Version 1)
Quarter: 2013Q1

REPORT INFORMATION
  Report Type: Spontaneous
  Country: US (occurrence: US)
  Receive Date: 20130314
  Receipt Date: 20130314
  Transmission Date: 20140127
  Serious: Yes (Other)
  Sender: FDA-Public Use
  Company Number: US-JNJFOC-20130304022

PATIENT
  Age: 58 Year
  Sex: Female

DRUGS (9)
  1. DOXORUBICIN [Suspect]
     Indication: B-CELL LYMPHOMA
     Route: 042
  2. CYCLOPHOSPHAMIDE [Suspect]
     Indication: B-CELL LYMPHOMA
     Route: 065
  3. ONCOVIN [Suspect]
     Indication: B-CELL LYMPHOMA
     Route: 065
  4. PREDNISOLONE [Suspect]
     Indication: B-CELL LYMPHOMA
     Route: 065
  5. FLUDARABINE [Suspect]
     Indication: B-CELL LYMPHOMA
     Route: 065
  6. NOVANTRONE [Suspect]
     Indication: B-CELL LYMPHOMA
     Route: 065
  7. DEXAMETHASONE [Suspect]
     Indication: B-CELL LYMPHOMA
     Route: 065
  8. RITUXIMAB [Suspect]
     Indication: B-CELL LYMPHOMA
     Route: 065
  9. RADIATION THERAPY [Suspect]
     Indication: B-CELL LYMPHOMA
     Route: 065

REACTIONS (1)
  - Myelodysplastic syndrome [Recovered/Resolved]
